FAERS Safety Report 17039903 (Version 1)
Quarter: 2019Q4

REPORT INFORMATION
  Report Type: Spontaneous
  Country: FR (occurrence: FR)
  Receive Date: 20191116
  Receipt Date: 20191116
  Transmission Date: 20200122
  Serious: Yes (Hospitalization)
  Sender: FDA-Public Use
  Company Number: FR-ACCORD-160583

PATIENT
  Age: 61 Year
  Sex: Male
  Weight: 94 kg

DRUGS (25)
  1. ALIMTA [Suspect]
     Active Substance: PEMETREXED DISODIUM
     Indication: LUNG ADENOCARCINOMA
     Route: 042
     Dates: start: 20190916, end: 20191007
  2. ATORVASTATIN ARROW [Concomitant]
     Active Substance: ATORVASTATIN CALCIUM
     Indication: DYSLIPIDAEMIA
     Dosage: 0-0-1 STRENGTH: 10 MG, COATED TABLET
     Route: 048
  3. METHYLPREDNISOLONE MYLAN [Suspect]
     Active Substance: METHYLPREDNISOLONE
     Indication: PREMEDICATION
     Route: 042
     Dates: start: 20190916, end: 20191007
  4. LEVETIRACETAM MYLAN [Concomitant]
     Active Substance: LEVETIRACETAM
     Indication: INTRACRANIAL PRESSURE INCREASED
     Dosage: 1-0-1
     Route: 048
     Dates: start: 20190816, end: 20191008
  5. ZOPHREN [Suspect]
     Active Substance: ONDANSETRON
     Indication: PREMEDICATION
     Route: 042
     Dates: start: 20190916, end: 20191007
  6. FLAGYL [Suspect]
     Active Substance: METRONIDAZOLE\METRONIDAZOLE HYDROCHLORIDE
     Indication: PNEUMONIA
     Dosage: 1-1-1
     Route: 048
     Dates: start: 20191008, end: 20191009
  7. TEMESTA [Concomitant]
     Indication: ANXIETY
     Dosage: 1-1-1-1, STRENGTH: 2,5 MG, BREACKABLE TABLET
     Route: 048
  8. CARBOPLATINE ACCORD [Suspect]
     Active Substance: CARBOPLATIN
     Indication: LUNG ADENOCARCINOMA
     Route: 042
     Dates: start: 20190916, end: 20191007
  9. LOVENOX [Suspect]
     Active Substance: ENOXAPARIN SODIUM
     Indication: THROMBOSIS PROPHYLAXIS
     Dosage: 0-0-1
     Route: 058
     Dates: start: 20191008, end: 20191014
  10. CEFTRIAXONE MYLAN [Suspect]
     Active Substance: CEFTRIAXONE
     Indication: PNEUMONIA
     Dosage: STRENGTH: 1 G, POWDER FOR SOLUTION FOR INJECTION
     Route: 042
     Dates: start: 20191008, end: 20191008
  11. FOLIC ACID CCD [Concomitant]
     Indication: ANAEMIA
     Dosage: 1-0-0, STRENGTH: 0.4 MG, TABLET
     Route: 048
     Dates: start: 20190823
  12. CLOPIDOGREL [Concomitant]
     Active Substance: CLOPIDOGREL BISULFATE
     Indication: ARTERITIS
     Dosage: 1-0-0, STRENGTH: 75 MG, COATED TABLET
     Route: 048
  13. IMOVANE [Concomitant]
     Active Substance: ZOPICLONE
     Indication: SLEEP DISORDER
     Dosage: STRENGTH: 7.5 MG, DIVISIBLE COATED TABLET
     Route: 048
     Dates: start: 20190918, end: 20191007
  14. RAMIPRIL MYLAN [Concomitant]
     Active Substance: RAMIPRIL
     Indication: HYPERTENSION
     Dosage: 1-0-0, STRENGTH: 2,5 MG, BREACKABLE TABLET
     Route: 048
     Dates: end: 20191009
  15. MOPRAL [Concomitant]
     Active Substance: OMEPRAZOLE
     Indication: PROPHYLAXIS AGAINST GASTROINTESTINAL ULCER
     Dosage: 0-0-1
     Route: 048
     Dates: end: 20191008
  16. SPASFON [Concomitant]
     Indication: PAIN
     Dosage: IF NEEDED (MAX 6/J)
     Route: 048
  17. JANUVIA [Concomitant]
     Active Substance: SITAGLIPTIN PHOSPHATE
     Indication: TYPE 2 DIABETES MELLITUS
     Dosage: 1-0-0
     Route: 048
     Dates: end: 20191008
  18. DOLIPRANE [Concomitant]
     Active Substance: ACETAMINOPHEN
     Indication: PAIN
     Dosage: 2-2-2-2
     Route: 048
     Dates: start: 20190816
  19. GENTAMICIN PANPHARMA [Suspect]
     Active Substance: GENTAMICIN
     Indication: PNEUMONIA
     Route: 042
     Dates: start: 20191008, end: 20191008
  20. RISORDAN [Suspect]
     Active Substance: ISOSORBIDE
     Indication: CARDIAC FAILURE
     Route: 042
     Dates: start: 20191008, end: 20191008
  21. CORTANCYL [Concomitant]
     Active Substance: PREDNISONE
     Indication: INTRACRANIAL PRESSURE INCREASED
     Dosage: 4-0-0
     Route: 048
  22. GLUCPPHAGE [Concomitant]
     Indication: TYPE 2 DIABETES MELLITUS
     Dosage: 1-1-1, STRENGTH: 1000 MG, COATED TABLET
     Route: 048
     Dates: end: 20191008
  23. NOVOMIX [Concomitant]
     Active Substance: INSULIN ASPART
     Indication: TYPE 2 DIABETES MELLITUS
     Dosage: 40 UI MORNING, 35 UI MIDDAY, STRENGTH: 30 PENFILL 100 U/ML, INJECTABLE SUSPENSION IN CARTRIDGE
     Route: 058
     Dates: start: 20190823
  24. PIPERACILLINE TAZOBACTAM MYLAN [Suspect]
     Active Substance: PIPERACILLIN SODIUM\TAZOBACTAM SODIUM
     Indication: PNEUMONIA
     Dosage: 1 INJECTION
     Route: 042
     Dates: start: 20191008, end: 20191008
  25. LASILIX [Suspect]
     Active Substance: FUROSEMIDE
     Indication: CARDIAC FAILURE
     Route: 042
     Dates: start: 20191008, end: 20191009

REACTIONS (3)
  - Leukopenia [Recovering/Resolving]
  - Agranulocytosis [Recovered/Resolved]
  - Aplasia [Recovering/Resolving]

NARRATIVE: CASE EVENT DATE: 20191009
